FAERS Safety Report 7326474 (Version 10)
Quarter: 2013Q1

REPORT INFORMATION
  Report Type: Spontaneous
  Country: US (occurrence: US)
  Receive Date: 20100320
  Receipt Date: 20130315
  Transmission Date: 20140127
  Serious: Yes (Other)
  Sender: FDA-Public Use
  Company Number: US-JNJFOC-20080704185

PATIENT
  Sex: Male
  Weight: 113.4 kg

DRUGS (7)
  1. RISPERDAL [Suspect]
     Indication: BIPOLAR DISORDER
     Route: 048
     Dates: start: 200702, end: 200805
  2. RISPERDAL M-TAB [Suspect]
     Indication: BIPOLAR I DISORDER
     Route: 048
     Dates: start: 20070509
  3. SEROQUEL [Suspect]
     Indication: BIPOLAR DISORDER
     Route: 065
     Dates: end: 20060424
  4. LEXAPRO [Concomitant]
     Indication: BIPOLAR I DISORDER
     Route: 065
  5. LAMICTAL [Concomitant]
     Indication: BIPOLAR I DISORDER
     Route: 065
  6. ABILIFY [Concomitant]
     Route: 065
     Dates: start: 20080505, end: 20080709
  7. STELAZINE [Concomitant]
     Route: 065

REACTIONS (12)
  - Suicidal ideation [Unknown]
  - Akathisia [Unknown]
  - Dystonia [Unknown]
  - Tardive dyskinesia [Not Recovered/Not Resolved]
  - Agitation [Unknown]
  - Depression [Unknown]
  - Impulsive behaviour [Unknown]
  - Breast tenderness [Unknown]
  - Hyperprolactinaemia [Unknown]
  - Gynaecomastia [Unknown]
  - Anxiety [Unknown]
  - Inappropriate schedule of drug administration [Recovered/Resolved]
